FAERS Safety Report 26201781 (Version 1)
Quarter: 2025Q4

REPORT INFORMATION
  Report Type: Spontaneous
  Country: EU (occurrence: EU)
  Receive Date: 20251226
  Receipt Date: 20251226
  Transmission Date: 20260117
  Serious: Yes (Death, Life-Threatening, Hospitalization, Other)
  Sender: AMGEN
  Company Number: EU-GLAXOSMITHKLINE-DK2020GSK167210

PATIENT
  Age: 78 Year
  Sex: Female
  Weight: 67 kg

DRUGS (16)
  1. BEVACIZUMAB [Suspect]
     Active Substance: BEVACIZUMAB
     Indication: Ovarian cancer
     Dosage: 1005 MG
     Route: 040
     Dates: start: 20200103
  2. BEVACIZUMAB [Suspect]
     Active Substance: BEVACIZUMAB
     Dosage: 1000 MG
     Route: 040
     Dates: start: 20200221
  3. DOSTARLIMAB [Suspect]
     Active Substance: DOSTARLIMAB
     Indication: Ovarian cancer
     Dosage: UNK
     Route: 065
     Dates: start: 20191119
  4. DOSTARLIMAB [Suspect]
     Active Substance: DOSTARLIMAB
     Dosage: UNK
     Route: 065
     Dates: start: 20200605
  5. CARBOPLATIN [Suspect]
     Active Substance: CARBOPLATIN
     Indication: Ovarian cancer
     Dosage: 384 MG
     Route: 040
     Dates: start: 20191021
  6. CARBOPLATIN [Suspect]
     Active Substance: CARBOPLATIN
     Dosage: 334 MG
     Route: 040
     Dates: start: 20200103
  7. CARBOPLATIN [Suspect]
     Active Substance: CARBOPLATIN
     Dosage: 322 MG
     Route: 040
     Dates: start: 20200221
  8. PACLITAXEL [Suspect]
     Active Substance: PACLITAXEL
     Indication: Ovarian cancer
     Dosage: 300 MG
     Route: 040
     Dates: start: 20191021
  9. PACLITAXEL [Suspect]
     Active Substance: PACLITAXEL
     Dosage: 228 MG
     Route: 040
     Dates: start: 20191119
  10. MICONAZOLE NITRATE [Concomitant]
     Active Substance: MICONAZOLE NITRATE
     Indication: Fungal infection
     Dosage: 1, BID
     Route: 062
     Dates: start: 20200806, end: 20200812
  11. TRIMETHOPRIM [Concomitant]
     Active Substance: TRIMETHOPRIM
     Indication: Urinary tract infection
     Dosage: 200 MG, BID
     Route: 048
     Dates: start: 20200810, end: 20200813
  12. PREDNISOLONE [Concomitant]
     Active Substance: PREDNISOLONE
     Indication: Rash
     Dosage: 50 MG, QD
     Route: 048
     Dates: start: 20200820, end: 20200823
  13. PREDNISOLONE [Concomitant]
     Active Substance: PREDNISOLONE
     Dosage: 25 MG, QD
     Route: 048
     Dates: start: 20200823, end: 20200901
  14. LEVOTHYROXINE [Concomitant]
     Active Substance: LEVOTHYROXINE
     Indication: Metabolic disorder
     Dosage: 50 UG, QD
     Route: 048
     Dates: start: 20200821
  15. CLEMASTINE FUMARATE [Concomitant]
     Active Substance: CLEMASTINE FUMARATE
     Indication: Rash
     Dosage: 2 MG, QD
     Route: 048
     Dates: start: 20200821, end: 20200823
  16. MOMETASONE [Concomitant]
     Active Substance: MOMETASONE
     Indication: Rash
     Dosage: 1 OTHER, QD
     Route: 062
     Dates: start: 20200822

REACTIONS (2)
  - Acute monocytic leukaemia [Fatal]
  - Dyspnoea [Recovered/Resolved]

NARRATIVE: CASE EVENT DATE: 20200819
